FAERS Safety Report 23079713 (Version 1)
Quarter: 2023Q4

REPORT INFORMATION
  Report Type: Spontaneous
  Country: IT (occurrence: IT)
  Receive Date: 20231018
  Receipt Date: 20231018
  Transmission Date: 20240110
  Serious: Yes (Other)
  Sender: FDA-Public Use
  Company Number: None

PATIENT
  Age: 76 Year
  Sex: Male

DRUGS (4)
  1. JARDIANCE [Suspect]
     Active Substance: EMPAGLIFLOZIN
     Indication: Product used for unknown indication
     Dosage: ONE CPR (AS REPORETED) IN THE MORNING
     Route: 048
  2. EZETIMIBE E ATORVASTATINA EG [Concomitant]
     Indication: Product used for unknown indication
     Dosage: 10+20 MG ONE CPR (AS REPORTED) EACH DAY
     Route: 048
  3. AMLODIPINA EG [Concomitant]
     Indication: Product used for unknown indication
     Dosage: 10MG 2 CPR (AS REPORTED), ONE IN THE MORNING AND ONE IN THE EVENING.
     Route: 048
  4. TELMISARTAN EG [Concomitant]
     Indication: Product used for unknown indication
     Dosage: 80MG ONE CPR (AS REPORTED) EACH DAY
     Route: 048

REACTIONS (1)
  - Weight decreased [Not Recovered/Not Resolved]

NARRATIVE: CASE EVENT DATE: 20230524
